FAERS Safety Report 18428790 (Version 1)
Quarter: 2020Q4

REPORT INFORMATION
  Report Type: Spontaneous
  Country: US (occurrence: US)
  Receive Date: 20201026
  Receipt Date: 20201026
  Transmission Date: 20210114
  Serious: Yes (Other)
  Sender: FDA-Public Use
  Company Number: US-PFM-2020-20339

PATIENT
  Sex: Female
  Weight: 5.9 kg

DRUGS (2)
  1. HEMANGEOL [Suspect]
     Active Substance: PROPRANOLOL HYDROCHLORIDE
     Indication: INFANTILE HAEMANGIOMA
     Dosage: 1.4 ML, BID (2/DAY)
     Route: 065
  2. IRON [Concomitant]
     Active Substance: IRON

REACTIONS (1)
  - Omphalitis [Unknown]
